FAERS Safety Report 21483172 (Version 3)
Quarter: 2022Q4

REPORT INFORMATION
  Report Type: Spontaneous
  Country: US (occurrence: US)
  Receive Date: 20221020
  Receipt Date: 20221121
  Transmission Date: 20230112
  Serious: Yes (Other)
  Sender: FDA-Public Use
  Company Number: US-JNJFOC-20221017532

PATIENT
  Age: 30 Year
  Sex: Female
  Weight: 72.640 kg

DRUGS (1)
  1. TREMFYA [Suspect]
     Active Substance: GUSELKUMAB
     Indication: Psoriasis
     Route: 058
     Dates: start: 20220701

REACTIONS (6)
  - Pharyngeal haemorrhage [Unknown]
  - COVID-19 [Unknown]
  - Product dose omission issue [Unknown]
  - Product leakage [Unknown]
  - Device malfunction [Unknown]
  - Needle issue [Unknown]

NARRATIVE: CASE EVENT DATE: 20221008
